FAERS Safety Report 11696052 (Version 1)
Quarter: 2015Q4

REPORT INFORMATION
  Report Type: Spontaneous
  Country: US (occurrence: None)
  Receive Date: 20151103
  Receipt Date: 20151103
  Transmission Date: 20160304
  Serious: Yes (Hospitalization)
  Sender: FDA-Public Use
  Company Number: None

PATIENT
  Age: 66 Year
  Sex: Male
  Weight: 77.11 kg

DRUGS (5)
  1. TEMAZEPAM. [Concomitant]
     Active Substance: TEMAZEPAM
  2. FINASTERIDE. [Concomitant]
     Active Substance: FINASTERIDE
  3. PRAMIPEXOLE CR [Concomitant]
  4. CYCLOBENZAPRINE [Concomitant]
     Active Substance: CYCLOBENZAPRINE
  5. RYTARY [Suspect]
     Active Substance: CARBIDOPA\LEVODOPA
     Indication: PARKINSON^S DISEASE
     Route: 048
     Dates: start: 20150820, end: 20150921

REACTIONS (4)
  - Agitation [None]
  - Fall [None]
  - Cervical vertebral fracture [None]
  - Hallucination [None]

NARRATIVE: CASE EVENT DATE: 20150919
